FAERS Safety Report 20408399 (Version 1)
Quarter: 2022Q1

REPORT INFORMATION
  Report Type: Spontaneous
  Country: AU (occurrence: AU)
  Receive Date: 20220201
  Receipt Date: 20220201
  Transmission Date: 20220423
  Serious: Yes (Other)
  Sender: FDA-Public Use
  Company Number: AU-ABBVIE-22K-008-4258370-00

PATIENT
  Age: 37 Year
  Sex: Female

DRUGS (3)
  1. EPILIM [Suspect]
     Active Substance: VALPROATE SODIUM
     Indication: Seizure
     Route: 065
  2. EPILIM [Suspect]
     Active Substance: VALPROATE SODIUM
     Route: 065
  3. LAMOTRIGINE [Suspect]
     Active Substance: LAMOTRIGINE
     Indication: Product used for unknown indication
     Route: 065

REACTIONS (1)
  - Neutropenia [Unknown]
